FAERS Safety Report 21840534 (Version 2)
Quarter: 2023Q1

REPORT INFORMATION
  Report Type: Report from Study
  Country: US (occurrence: US)
  Receive Date: 20230110
  Receipt Date: 20230113
  Transmission Date: 20230418
  Serious: Yes (Hospitalization)
  Sender: FDA-Public Use
  Company Number: US-UCBSA-2023000713

PATIENT
  Age: 19 Year
  Sex: Male

DRUGS (1)
  1. FINTEPLA [Suspect]
     Active Substance: FENFLURAMINE
     Indication: Product used for unknown indication
     Dosage: 6.5 MILLILITER, 2X/DAY (BID)

REACTIONS (7)
  - Dehydration [Not Recovered/Not Resolved]
  - Streptococcus test positive [Unknown]
  - Septic shock [Not Recovered/Not Resolved]
  - Streptococcal sepsis [Not Recovered/Not Resolved]
  - Endotracheal intubation [Not Recovered/Not Resolved]
  - Overdose [Unknown]
  - Product use issue [Unknown]

NARRATIVE: CASE EVENT DATE: 20230103
